FAERS Safety Report 22534570 (Version 7)
Quarter: 2025Q2

REPORT INFORMATION
  Report Type: Report from Study
  Country: CA (occurrence: CA)
  Receive Date: 20230608
  Receipt Date: 20250530
  Transmission Date: 20250716
  Serious: Yes (Other)
  Sender: TAKEDA
  Company Number: CA-TAKEDA-2022TUS058731

PATIENT
  Sex: Male

DRUGS (24)
  1. VEDOLIZUMAB [Suspect]
     Active Substance: VEDOLIZUMAB
     Indication: Crohn^s disease
  2. VEDOLIZUMAB [Suspect]
     Active Substance: VEDOLIZUMAB
     Dosage: 300 MILLIGRAM, Q4WEEKS
     Dates: start: 20210927
  3. VEDOLIZUMAB [Suspect]
     Active Substance: VEDOLIZUMAB
     Dosage: 300 MILLIGRAM, Q4WEEKS
  4. VEDOLIZUMAB [Suspect]
     Active Substance: VEDOLIZUMAB
     Dosage: 300 MILLIGRAM, Q4WEEKS
  5. VEDOLIZUMAB [Suspect]
     Active Substance: VEDOLIZUMAB
     Dosage: 300 MILLIGRAM, Q4WEEKS
  6. VEDOLIZUMAB [Suspect]
     Active Substance: VEDOLIZUMAB
     Dosage: 300 MILLIGRAM, Q4WEEKS
  7. VEDOLIZUMAB [Suspect]
     Active Substance: VEDOLIZUMAB
     Dosage: 300 MILLIGRAM, Q4WEEKS
  8. VEDOLIZUMAB [Suspect]
     Active Substance: VEDOLIZUMAB
     Dosage: 300 MILLIGRAM, Q4WEEKS
  9. ASPIRIN [Concomitant]
     Active Substance: ASPIRIN
  10. AZATHIOPRINE [Concomitant]
     Active Substance: AZATHIOPRINE
  11. ELIGARD [Concomitant]
     Active Substance: LEUPROLIDE ACETATE
  12. LOSEC [Concomitant]
     Active Substance: OMEPRAZOLE
  13. LIPITOR [Concomitant]
     Active Substance: ATORVASTATIN CALCIUM
  14. VITAMIN B [Concomitant]
     Active Substance: VITAMIN B
  15. VITAMIN D [Concomitant]
     Active Substance: VITAMIN D NOS
  16. OMEGA 3 [Concomitant]
     Active Substance: CAPSAICIN
  17. TYLENOL ARTHRITIS PAIN [Concomitant]
     Active Substance: ACETAMINOPHEN
  18. FLONASE [Concomitant]
     Active Substance: FLUTICASONE PROPIONATE
     Dosage: UNK UNK, BID
  19. ASPIRIN [Concomitant]
     Active Substance: ASPIRIN
  20. PERINDOPRIL [Concomitant]
     Active Substance: PERINDOPRIL
  21. PERINDOPRIL [Concomitant]
     Active Substance: PERINDOPRIL
  22. OMEPRAZOLE [Concomitant]
     Active Substance: OMEPRAZOLE
  23. GLYCOPYRRONIUM [Concomitant]
     Active Substance: GLYCOPYRRONIUM
  24. HERBALS\TURMERIC [Concomitant]
     Active Substance: HERBALS\TURMERIC

REACTIONS (2)
  - Crohn^s disease [Unknown]
  - Arthralgia [Unknown]
